FAERS Safety Report 9769085 (Version 1)
Quarter: 2013Q4

REPORT INFORMATION
  Report Type: Spontaneous
  Country: IE (occurrence: IE)
  Receive Date: 20131218
  Receipt Date: 20131218
  Transmission Date: 20140711
  Serious: Yes (Hospitalization)
  Sender: FDA-Public Use
  Company Number: IE-JNJFOC-20131210365

PATIENT
  Age: 49 Year
  Sex: Female

DRUGS (2)
  1. SIMPONI [Suspect]
     Indication: RHEUMATOID ARTHRITIS
     Route: 058
     Dates: start: 20131001, end: 20131209
  2. KERAL [Concomitant]
     Route: 065
     Dates: start: 20130827, end: 20131209

REACTIONS (2)
  - Cellulitis [Not Recovered/Not Resolved]
  - Oral herpes [Not Recovered/Not Resolved]
